FAERS Safety Report 9249028 (Version 1)
Quarter: 2013Q2

REPORT INFORMATION
  Report Type: Spontaneous
  Country: US (occurrence: None)
  Receive Date: 20130419
  Receipt Date: 20130419
  Transmission Date: 20140414
  Serious: Yes (Life-Threatening, Hospitalization)
  Sender: FDA-Public Use
  Company Number: None

PATIENT
  Age: 64 Year
  Sex: Male
  Weight: 60.9 kg

DRUGS (2)
  1. RIFAMPIN [Suspect]
     Indication: STAPHYLOCOCCAL ABSCESS
     Route: 048
     Dates: start: 20121102, end: 20121120
  2. RIFAMPIN [Suspect]
     Indication: BACTERIAL ABSCESS CENTRAL NERVOUS SYSTEM
     Route: 048
     Dates: start: 20121102, end: 20121120

REACTIONS (6)
  - Aspartate aminotransferase increased [None]
  - Alanine aminotransferase increased [None]
  - Blood bilirubin increased [None]
  - Bilirubin conjugated increased [None]
  - Blood alkaline phosphatase increased [None]
  - Jaundice [None]
